FAERS Safety Report 23913879 (Version 2)
Quarter: 2024Q3

REPORT INFORMATION
  Report Type: Spontaneous
  Country: US (occurrence: US)
  Receive Date: 20240529
  Receipt Date: 20240902
  Transmission Date: 20241016
  Serious: No
  Sender: CIPLA
  Company Number: US-CIPLA LTD.-2024US04721

PATIENT

DRUGS (4)
  1. TENOFOVIR [Suspect]
     Active Substance: TENOFOVIR
     Dosage: COURSE-1, 300 MILLIGRAMS, DAILY
     Route: 064
     Dates: start: 2023
  2. DARUNAVIR [Suspect]
     Active Substance: DARUNAVIR
     Dosage: COURSE-1, 1200 MILLIGRAM, DAILY
     Route: 064
     Dates: start: 2023
  3. RITONAVIR [Suspect]
     Active Substance: RITONAVIR
     Dosage: COURSE-1, 200 MILLIGRAM DAILY
     Route: 064
     Dates: start: 2023
  4. TIVICAY [Suspect]
     Active Substance: DOLUTEGRAVIR SODIUM
     Dosage: COURSE-1, 50 MILLIGRAM DAILY DTG
     Route: 064
     Dates: start: 2023

REACTIONS (4)
  - Scrotal cyst [Unknown]
  - Peritoneal cyst [Unknown]
  - Premature baby [Unknown]
  - Foetal exposure during pregnancy [Unknown]
